FAERS Safety Report 18301923 (Version 2)
Quarter: 2021Q3

REPORT INFORMATION
  Report Type: Spontaneous
  Country: US (occurrence: US)
  Receive Date: 20200923
  Receipt Date: 20210825
  Transmission Date: 20211014
  Serious: Yes (Hospitalization, Disabling, Other)
  Sender: FDA-Public Use
  Company Number: US-SA-2020SA254959

PATIENT
  Sex: Female

DRUGS (1)
  1. ZANTAC [Suspect]
     Active Substance: RANITIDINE HYDROCHLORIDE
     Indication: GASTROOESOPHAGEAL REFLUX DISEASE
     Dosage: 300 MG, QD
     Route: 065
     Dates: start: 2015, end: 202008

REACTIONS (8)
  - Anxiety [Unknown]
  - Pain [Unknown]
  - Neoplasm malignant [Unknown]
  - Emotional distress [Unknown]
  - Injury [Unknown]
  - Breast cancer female [Unknown]
  - Physical disability [Unknown]
  - Anhedonia [Unknown]

NARRATIVE: CASE EVENT DATE: 20181031
